FAERS Safety Report 25252009 (Version 1)
Quarter: 2025Q2

REPORT INFORMATION
  Report Type: Spontaneous
  Country: RU (occurrence: RU)
  Receive Date: 20250429
  Receipt Date: 20250429
  Transmission Date: 20250717
  Serious: Yes (Other)
  Sender: NOVARTIS
  Company Number: RU-002147023-NVSC2025RU066781

PATIENT

DRUGS (1)
  1. ASCIMINIB [Suspect]
     Active Substance: ASCIMINIB
     Indication: Product used for unknown indication
     Route: 065
     Dates: start: 20250225

REACTIONS (4)
  - Polyarthritis [Unknown]
  - Leukopenia [Unknown]
  - Lymphocytosis [Unknown]
  - Arthralgia [Unknown]
